FAERS Safety Report 8550997-3 (Version None)
Quarter: 2012Q3

REPORT INFORMATION
  Report Type: 
  Country: None (occurrence: None)
  Receive Date: 20120730
  Receipt Date: 20111017
  Transmission Date: 20120928
  Serious: No
  Sender: FDA-Public Use
  Company Number: US-ALLERGAN-1113713US

PATIENT
  Sex: Female

DRUGS (3)
  1. LUMIGAN [Suspect]
     Dosage: 2 GTT, QHS
     Route: 047
     Dates: start: 20110901, end: 20111015
  2. LUMIGAN [Suspect]
     Indication: GLAUCOMA
     Dosage: 2 GTT, QHS
     Route: 047
     Dates: start: 20110601, end: 20110815
  3. LUMIGAN [Suspect]
     Dosage: 1 GTT, QHS
     Route: 047
     Dates: start: 20110529, end: 20110601

REACTIONS (3)
  - ASTHMA [None]
  - INSOMNIA [None]
  - GROWTH OF EYELASHES [None]
